FAERS Safety Report 6146975-4 (Version None)
Quarter: 2009Q2

REPORT INFORMATION
  Report Type: 
  Country: None (occurrence: None)
  Receive Date: 20090407
  Receipt Date: 20090327
  Transmission Date: 20091009
  Serious: Yes (Other)
  Sender: FDA-Public Use
  Company Number: BR-ELI_LILLY_AND_COMPANY-BR200903007272

PATIENT
  Sex: Female
  Weight: 64 kg

DRUGS (2)
  1. ZYPREXA [Suspect]
     Indication: PSYCHOTIC DISORDER
     Dosage: 5 MG, UNKNOWN
     Route: 048
  2. CLONAZEPAM [Concomitant]
     Indication: INSOMNIA
     Dosage: 2 MG, UNKNOWN
     Route: 065

REACTIONS (6)
  - ABDOMINAL RIGIDITY [None]
  - ANXIETY [None]
  - GASTRIC DILATATION [None]
  - GASTRIC HAEMORRHAGE [None]
  - MOOD ALTERED [None]
  - NERVOUSNESS [None]
